FAERS Safety Report 9552317 (Version 1)
Quarter: 2013Q3

REPORT INFORMATION
  Report Type: Spontaneous
  Country: DK (occurrence: CN)
  Receive Date: 20130925
  Receipt Date: 20130925
  Transmission Date: 20140515
  Serious: Yes (Hospitalization)
  Sender: FDA-Public Use
  Company Number: CN-FRI-1000049087

PATIENT
  Age: 98 Year
  Sex: Male

DRUGS (3)
  1. CITALOPRAM [Suspect]
     Dosage: 2.5 MG
  2. AMIODARONE [Suspect]
     Dosage: 200 MG
  3. LINEZOLID [Suspect]
     Indication: PNEUMONIA STAPHYLOCOCCAL
     Dosage: 1200 MG
     Route: 042

REACTIONS (2)
  - Serotonin syndrome [Unknown]
  - Drug interaction [Unknown]
